FAERS Safety Report 9795547 (Version 1)
Quarter: 2014Q1

REPORT INFORMATION
  Report Type: Spontaneous
  Country: US (occurrence: US)
  Receive Date: 20140103
  Receipt Date: 20140103
  Transmission Date: 20141002
  Serious: Yes (Other)
  Sender: FDA-Public Use
  Company Number: US-BAYER-2014-000771

PATIENT
  Age: 45 Year
  Sex: Female
  Weight: 59.86 kg

DRUGS (8)
  1. YAZ [Suspect]
  2. YASMIN [Suspect]
  3. FLUNISOLIDE [Concomitant]
     Dosage: 29 MCG
     Route: 045
  4. CLINDAMYCIN PHOSPHATE [Concomitant]
     Dosage: 1 %, UNK
     Route: 061
  5. BUTALBITAL/CAFFEINE/PARACETAMOL/ [Concomitant]
     Dosage: 50-325-40 MG
     Route: 048
  6. CEPHALEXIN [Concomitant]
     Dosage: 500 MG FOUR TIMES DAILY FOR TEN DAYS
     Route: 048
  7. NECON [Concomitant]
  8. KEFLEX [Concomitant]
     Indication: CELLULITIS

REACTIONS (2)
  - Deep vein thrombosis [None]
  - Thrombophlebitis superficial [None]
